FAERS Safety Report 13337626 (Version 1)
Quarter: 2017Q1

REPORT INFORMATION
  Report Type: Spontaneous
  Country: US (occurrence: US)
  Receive Date: 20170314
  Receipt Date: 20170314
  Transmission Date: 20170428
  Serious: No
  Sender: FDA-Public Use
  Company Number: None

PATIENT
  Age: 36 Year
  Sex: Female

DRUGS (6)
  1. OTEZLA [Concomitant]
     Active Substance: APREMILAST
  2. PREDNISONE. [Concomitant]
     Active Substance: PREDNISONE
  3. METHOTREXATE (MTX) [Concomitant]
  4. HUMALOG [Concomitant]
     Active Substance: INSULIN LISPRO
  5. NUCALA [Suspect]
     Active Substance: MEPOLIZUMAB
     Indication: RHEUMATOID ARTHRITIS
  6. TOUJEO [Concomitant]
     Active Substance: INSULIN GLARGINE

REACTIONS (4)
  - Activities of daily living impaired [None]
  - Depression [None]
  - Nodule [None]
  - Dysstasia [None]

NARRATIVE: CASE EVENT DATE: 20160915
